FAERS Safety Report 21539755 (Version 1)
Quarter: 2022Q4

REPORT INFORMATION
  Report Type: Spontaneous
  Country: US (occurrence: US)
  Receive Date: 20221102
  Receipt Date: 20221102
  Transmission Date: 20230112
  Serious: Yes (Other)
  Sender: FDA-Public Use
  Company Number: US-SUN PHARMACEUTICAL INDUSTRIES LTD-2022R1-361550

PATIENT
  Age: 51 Year
  Sex: Female
  Weight: 82.177 kg

DRUGS (8)
  1. HYDROXYCHLOROQUINE [Suspect]
     Active Substance: HYDROXYCHLOROQUINE
     Indication: Lyme disease
     Dosage: 200 MILLIGRAM, BID
     Route: 048
  2. MINOCYCLINE [Suspect]
     Active Substance: MINOCYCLINE HYDROCHLORIDE
     Indication: Lyme disease
     Dosage: 100 MILLIGRAM, BID
     Route: 048
  3. DAPSONE [Suspect]
     Active Substance: DAPSONE
     Indication: Lyme disease
     Dosage: 25 MILLIGRAM, BID
     Route: 048
  4. DAPSONE [Suspect]
     Active Substance: DAPSONE
     Dosage: 100 MILLIGRAM, DAILY
     Route: 048
     Dates: start: 202102
  5. LEVOMEFOLIC ACID [Suspect]
     Active Substance: LEVOMEFOLIC ACID
     Indication: Lyme disease
     Dosage: 15 MILLIGRAM, DAILY
     Route: 065
  6. LEUCOVORIN [Suspect]
     Active Substance: LEUCOVORIN
     Indication: Lyme disease
     Dosage: 25 MILLIGRAM, DAILY
     Route: 065
  7. MALARONE [Suspect]
     Active Substance: ATOVAQUONE\PROGUANIL HYDROCHLORIDE
     Indication: Lyme disease
     Dosage: 2, BID
     Route: 048
  8. RIFAMPIN [Suspect]
     Active Substance: RIFAMPIN
     Indication: Lyme disease
     Dosage: 300 MILLIGRAM, BID
     Route: 048

REACTIONS (1)
  - Therapy partial responder [Unknown]
